FAERS Safety Report 9106954 (Version 2)
Quarter: 2013Q2

REPORT INFORMATION
  Report Type: Spontaneous
  Country: US (occurrence: US)
  Receive Date: 20130221
  Receipt Date: 20130419
  Transmission Date: 20140414
  Serious: No
  Sender: FDA-Public Use
  Company Number: US-009507513-1301USA013457

PATIENT
  Age: 64 Year
  Sex: Female

DRUGS (2)
  1. MIRALAX [Suspect]
     Indication: PRODUCT USED FOR UNKNOWN INDICATION
     Dosage: UNK, UNKNOWN
     Route: 048
  2. BENAZEPRIL HYDROCHLORIDE [Concomitant]
     Indication: FLUCTUANCE

REACTIONS (4)
  - Functional gastrointestinal disorder [Unknown]
  - Abdominal pain [Unknown]
  - Vomiting [Unknown]
  - Faecal vomiting [Unknown]
